FAERS Safety Report 6442574-5 (Version None)
Quarter: 2009Q4

REPORT INFORMATION
  Report Type: 
  Country: None (occurrence: None)
  Receive Date: 20091117
  Receipt Date: 20091112
  Transmission Date: 20100525
  Serious: Yes (Disabling)
  Sender: FDA-Public Use
  Company Number: FR-ALLERGAN-0915687US

PATIENT
  Age: 80 Year
  Sex: Female

DRUGS (1)
  1. GANFORT [Suspect]
     Indication: OPEN ANGLE GLAUCOMA
     Dosage: 1 GTT, QPM
     Route: 047
     Dates: start: 20071220, end: 20080119

REACTIONS (2)
  - EYE PAIN [None]
  - VISUAL ACUITY REDUCED [None]
